FAERS Safety Report 8275384-7 (Version None)
Quarter: 2012Q2

REPORT INFORMATION
  Report Type: 
  Country: None (occurrence: None)
  Receive Date: 20120411
  Receipt Date: 20120405
  Transmission Date: 20120825
  Serious: Yes (Other)
  Sender: FDA-Public Use
  Company Number: DE-MERCK-1201DEU00103

PATIENT
  Age: 76 Year
  Sex: Male
  Weight: 51 kg

DRUGS (6)
  1. WARFARIN SODIUM [Concomitant]
     Indication: VASCULAR GRAFT
     Route: 048
  2. JANUMET [Suspect]
     Indication: DIABETES MELLITUS
     Route: 048
     Dates: start: 20111124, end: 20111130
  3. JANUVIA [Suspect]
     Indication: DIABETES MELLITUS
     Route: 048
     Dates: start: 20111101, end: 20111123
  4. PANCREATIN [Concomitant]
     Indication: PANCREATITIS
     Route: 048
  5. PANCREATIN [Concomitant]
     Indication: PANCREATIC INSUFFICIENCY
     Route: 048
  6. WARFARIN SODIUM [Concomitant]
     Indication: ATRIAL FIBRILLATION
     Route: 048

REACTIONS (2)
  - GENERALISED ERYTHEMA [None]
  - PRURITUS [None]
